FAERS Safety Report 25553868 (Version 1)
Quarter: 2025Q3

REPORT INFORMATION
  Report Type: Spontaneous
  Country: US (occurrence: None)
  Receive Date: 20250714
  Receipt Date: 20250714
  Transmission Date: 20251021
  Serious: Yes (Other)
  Sender: FDA-CTU
  Company Number: None

PATIENT
  Age: 51 Year
  Sex: Female
  Weight: 79.65 kg

DRUGS (18)
  1. COSENTYX [Suspect]
     Active Substance: SECUKINUMAB
     Indication: Hidradenitis
     Route: 058
     Dates: start: 20241021
  2. TACROLIMUS [Concomitant]
     Active Substance: TACROLIMUS
  3. Omega 3 Acid Ethyl Esters Oral Caps [Concomitant]
  4. Fluoxetine (PMDD) HCL 20 [Concomitant]
  5. ATORVASTATIN [Concomitant]
     Active Substance: ATORVASTATIN
  6. Clindamcyin HCl 150 [Concomitant]
  7. PERCOCET [Concomitant]
     Active Substance: ACETAMINOPHEN\OXYCODONE HYDROCHLORIDE
  8. VITAMIN B12 [Concomitant]
     Active Substance: CYANOCOBALAMIN
  9. CLONAZEPAM [Concomitant]
     Active Substance: CLONAZEPAM
  10. Fluticasone prop Spray 50 [Concomitant]
  11. Mupirocin 2% oint [Concomitant]
  12. POTASSIUM CHLORIDE [Concomitant]
     Active Substance: POTASSIUM CHLORIDE
  13. SERTRALINE [Concomitant]
     Active Substance: SERTRALINE HYDROCHLORIDE
  14. OMEPRAZOLE [Concomitant]
     Active Substance: OMEPRAZOLE
  15. Cephalexin 500 [Concomitant]
  16. BACTRIM [Concomitant]
     Active Substance: SULFAMETHOXAZOLE\TRIMETHOPRIM
  17. Ondansetron 4 [Concomitant]
  18. Azithromycin 250 tabs [Concomitant]

REACTIONS (2)
  - Diarrhoea [None]
  - Blood potassium decreased [None]

NARRATIVE: CASE EVENT DATE: 20250714
